FAERS Safety Report 19236310 (Version 1)
Quarter: 2021Q2

REPORT INFORMATION
  Report Type: Spontaneous
  Country: US (occurrence: US)
  Receive Date: 20210510
  Receipt Date: 20210510
  Transmission Date: 20210717
  Serious: Yes (Hospitalization)
  Sender: FDA-Public Use
  Company Number: US-CADILA HEALTHCARE LIMITED-US-ZYDUS-065458

PATIENT

DRUGS (1)
  1. VENLAFAXINE [Suspect]
     Active Substance: VENLAFAXINE HYDROCHLORIDE
     Indication: PRODUCT USED FOR UNKNOWN INDICATION
     Dosage: UNK
     Route: 048

REACTIONS (7)
  - Brugada syndrome [Recovered/Resolved]
  - Accidental overdose [Recovered/Resolved]
  - Ventricular tachycardia [Recovered/Resolved]
  - Stress cardiomyopathy [Recovering/Resolving]
  - Status epilepticus [Unknown]
  - Cardiogenic shock [Unknown]
  - Haemodynamic instability [Recovered/Resolved]
